FAERS Safety Report 17214502 (Version 2)
Quarter: 2020Q1

REPORT INFORMATION
  Report Type: Report from Study
  Country: US (occurrence: US)
  Receive Date: 20191230
  Receipt Date: 20200109
  Transmission Date: 20200409
  Serious: No
  Sender: FDA-Public Use
  Company Number: US-KYOWAKIRIN-2019BKK020582

PATIENT

DRUGS (1)
  1. NOURIANZ [Suspect]
     Active Substance: ISTRADEFYLLINE
     Indication: PARKINSON^S DISEASE
     Dosage: 20 MG DAILY
     Route: 065
     Dates: start: 201912, end: 201912

REACTIONS (6)
  - Musculoskeletal stiffness [Not Recovered/Not Resolved]
  - Gait disturbance [Not Recovered/Not Resolved]
  - Muscular weakness [Not Recovered/Not Resolved]
  - Sleep talking [Unknown]
  - Rash erythematous [Not Recovered/Not Resolved]
  - Abnormal dreams [Unknown]

NARRATIVE: CASE EVENT DATE: 201912
